FAERS Safety Report 4992406-7 (Version None)
Quarter: 2006Q1

REPORT INFORMATION
  Report Type: 
  Country: None (occurrence: None)
  Receive Date: 20060314
  Receipt Date: 20060103
  Transmission Date: 20060701
  Serious: Yes (Disabling)
  Sender: FDA-Public Use
  Company Number: 2005-01956

PATIENT
  Age: 60 Year
  Sex: Male
  Weight: 83.9 kg

DRUGS (13)
  1. VELCADE [Suspect]
     Indication: MULTIPLE MYELOMA
     Dosage: 2.60 MG; SEE IMAGE
     Dates: start: 20050422, end: 20050606
  2. VELCADE [Suspect]
     Indication: MULTIPLE MYELOMA
     Dosage: 2.60 MG; SEE IMAGE
     Dates: start: 20050610, end: 20050705
  3. FUROSEMIDE [Concomitant]
  4. ASPIRIN (ACETEYLSALICYLIC ACID) [Concomitant]
  5. MULTIVITAMINS (ERGOCALCIFEROL, PANTHENOL, NICOTINAMIDE, RIBOFLAVIN, TH [Concomitant]
  6. IRON (IRON) [Concomitant]
  7. SENNA (SENNA) [Concomitant]
  8. ZYLOPRIM [Concomitant]
  9. PROTONIX [Concomitant]
  10. CLONIDINE HCL [Concomitant]
  11. SODIUM BICARBONATE IN PLASTIC CONTAINER [Concomitant]
  12. SYNTHROID [Concomitant]
  13. CARDIZEM [Concomitant]

REACTIONS (4)
  - ABDOMINAL PAIN UPPER [None]
  - CHEST PAIN [None]
  - NEUROPATHY PERIPHERAL [None]
  - PILOERECTION [None]
